FAERS Safety Report 9443873 (Version 1)
Quarter: 2013Q3

REPORT INFORMATION
  Report Type: Spontaneous
  Country: CA (occurrence: CA)
  Receive Date: 20130806
  Receipt Date: 20130806
  Transmission Date: 20140515
  Serious: Yes (Hospitalization)
  Sender: FDA-Public Use
  Company Number: CA-AMGEN-CANSP2013053824

PATIENT
  Age: 70 Year
  Sex: Female

DRUGS (2)
  1. SENSIPAR [Suspect]
     Indication: HYPERPARATHYROIDISM SECONDARY
     Dosage: 90 MG, UNK
     Route: 065
     Dates: start: 20060916
  2. SENSIPAR [Suspect]
     Indication: RENAL FAILURE CHRONIC

REACTIONS (1)
  - Pyrexia [Recovered/Resolved]
